FAERS Safety Report 8583742-6 (Version None)
Quarter: 2012Q3

REPORT INFORMATION
  Report Type: 
  Country: None (occurrence: None)
  Receive Date: 20120810
  Receipt Date: 20120720
  Transmission Date: 20120928
  Serious: Yes (Other)
  Sender: FDA-Public Use
  Company Number: JP-009507513-1207JPN007937

PATIENT

DRUGS (8)
  1. TELAVIC [Suspect]
     Indication: HEPATITIS C
     Route: 048
     Dates: start: 20120626, end: 20120629
  2. CONIEL [Concomitant]
     Indication: HYPERTENSION
     Route: 048
     Dates: end: 20120629
  3. URSO 250 [Concomitant]
     Indication: HEPATITIS C
     Route: 048
  4. ALLOPURINOL [Concomitant]
     Indication: PROPHYLAXIS
     Route: 048
     Dates: start: 20120626, end: 20120629
  5. RABEPRAZOLE SODIUM [Concomitant]
     Indication: GASTROOESOPHAGEAL REFLUX DISEASE
     Route: 048
     Dates: end: 20120704
  6. MICARDIS [Concomitant]
     Indication: HYPERTENSION
     Route: 048
     Dates: end: 20120629
  7. PEG-INTRON [Suspect]
     Indication: HEPATITIS C
     Dosage: 1.5G/KG/WEEK
     Route: 058
     Dates: start: 20120626, end: 20120626
  8. REBETOL [Suspect]
     Indication: HEPATITIS C
     Route: 048
     Dates: start: 20120626, end: 20120629

REACTIONS (1)
  - BLOOD CREATININE INCREASED [None]
